FAERS Safety Report 9195168 (Version 1)
Quarter: 2013Q1

REPORT INFORMATION
  Report Type: Spontaneous
  Country: US (occurrence: US)
  Receive Date: 20130328
  Receipt Date: 20130328
  Transmission Date: 20140127
  Serious: No
  Sender: FDA-Public Use
  Company Number: US-ALLERGAN-1302642US

PATIENT
  Age: 76 Year
  Sex: Female

DRUGS (4)
  1. LUMIGAN? 0.01% [Suspect]
     Indication: INTRAOCULAR PRESSURE INCREASED
     Dosage: 1 GTT, QHS
     Route: 047
  2. BLOOD PRESSURE MEDICATION NOS [Concomitant]
     Indication: HYPERTENSION
     Dosage: UNK
  3. DIABETES MEDICATION NOS [Concomitant]
     Indication: DIABETES MELLITUS
     Dosage: UNK
  4. ACID REDUCER [Concomitant]
     Indication: PRODUCT USED FOR UNKNOWN INDICATION
     Dosage: UNK

REACTIONS (5)
  - Sensory disturbance [Unknown]
  - Dysgeusia [Unknown]
  - Adverse drug reaction [Unknown]
  - Adverse event [Unknown]
  - Iris hyperpigmentation [Unknown]
